FAERS Safety Report 7946591-5 (Version None)
Quarter: 2011Q4

REPORT INFORMATION
  Report Type: 
  Country: None (occurrence: None)
  Receive Date: 20111129
  Receipt Date: 20111117
  Transmission Date: 20120403
  Serious: Yes (Hospitalization)
  Sender: FDA-Public Use
  Company Number: US-JNJFOC-20111011598

PATIENT
  Sex: Female
  Weight: 89.8 kg

DRUGS (1)
  1. INFLIXIMAB, RECOMBINANT [Suspect]
     Indication: PSORIASIS
     Route: 042
     Dates: start: 20060401

REACTIONS (3)
  - DEEP VEIN THROMBOSIS [None]
  - COMPARTMENT SYNDROME [None]
  - HAEMATOMA [None]
